FAERS Safety Report 11266250 (Version 1)
Quarter: 2015Q3

REPORT INFORMATION
  Report Type: Spontaneous
  Country: IT (occurrence: IT)
  Receive Date: 20150713
  Receipt Date: 20150713
  Transmission Date: 20151125
  Serious: Yes (Other)
  Sender: FDA-Public Use
  Company Number: IT-ENDO PHARMACEUTICALS INC.-2015-001747

PATIENT
  Age: 28 Year
  Sex: Male

DRUGS (4)
  1. ACETAMINOPHEN/CHLORPHENIRAMINE MALEATE [Suspect]
     Active Substance: ACETAMINOPHEN\CHLORPHENIRAMINE MALEATE
     Indication: PRODUCT USED FOR UNKNOWN INDICATION
     Route: 065
  2. KETOPROFEN. [Suspect]
     Active Substance: KETOPROFEN
     Indication: ARTHRALGIA
     Route: 048
  3. FORTESTA [Suspect]
     Active Substance: TESTOSTERONE
     Indication: PHYSICAL FITNESS TRAINING
     Route: 065
     Dates: start: 20150520, end: 20150522
  4. BRANCHED CHAIN AMINO ACIDS [Suspect]
     Active Substance: AMINO ACIDS
     Indication: PHYSICAL FITNESS TRAINING
     Route: 065
     Dates: start: 20150520

REACTIONS (2)
  - Hepatitis toxic [Recovering/Resolving]
  - Off label use [Unknown]

NARRATIVE: CASE EVENT DATE: 20150520
